FAERS Safety Report 9531483 (Version 1)
Quarter: 2013Q2

REPORT INFORMATION
  Report Type: Spontaneous
  Country: DE (occurrence: None)
  Receive Date: 20130404
  Receipt Date: 20130404
  Transmission Date: 20140414
  Serious: Yes (Other)
  Sender: FDA-Public Use
  Company Number: E2B_00000206

PATIENT
  Age: 36 Year
  Sex: Female
  Weight: 170 kg

DRUGS (3)
  1. SERTRALINE (SERTRALINE) (50 MILLIGRAM, TABLETS) (SERTRALINE) [Suspect]
     Indication: DEPRESSION
     Route: 048
     Dates: start: 20120320, end: 20120408
  2. MIRTAZAPINE (MIRTAZIPINE) [Suspect]
     Indication: DEPRESSION
     Route: 048
     Dates: start: 20120320, end: 20120408
  3. CONTRACEPTIVES NOS [Suspect]
     Indication: PRODUCT USED FOR UNKNOWN INDICATION

REACTIONS (3)
  - Dizziness [None]
  - Breast discomfort [None]
  - Diarrhoea [None]
